FAERS Safety Report 6716396-1 (Version None)
Quarter: 2010Q2

REPORT INFORMATION
  Report Type: 
  Country: None (occurrence: None)
  Receive Date: 20100507
  Receipt Date: 20100507
  Transmission Date: 20101027
  Serious: Yes (Life-Threatening)
  Sender: FDA-Public Use
  Company Number: None

PATIENT
  Age: 23 Month

DRUGS (1)
  1. CHILDREN'S MOTRIN [Suspect]
     Dosage: ONE TEASPOON EVERY SIX HOURS ORALLY
     Route: 048
     Dates: start: 20100429, end: 20100503

REACTIONS (9)
  - BACTERIAL INFECTION [None]
  - BODY TEMPERATURE INCREASED [None]
  - DISCOMFORT [None]
  - HYPOPHAGIA [None]
  - PRODUCT CONTAMINATION MICROBIAL [None]
  - PRODUCT CONTAMINATION PHYSICAL [None]
  - PRODUCT FORMULATION ISSUE [None]
  - PRODUCT QUALITY ISSUE [None]
  - SCREAMING [None]
